FAERS Safety Report 12291165 (Version 1)
Quarter: 2016Q2

REPORT INFORMATION
  Report Type: Spontaneous
  Country: IN (occurrence: IN)
  Receive Date: 20160421
  Receipt Date: 20160421
  Transmission Date: 20160815
  Serious: Yes (Hospitalization)
  Sender: FDA-Public Use
  Company Number: IN-UNICHEM LABORATORIES LIMITED-UCM201407-000135

PATIENT
  Age: 19 Year
  Sex: Male

DRUGS (6)
  1. DIVALPROEX SODIUM. [Suspect]
     Active Substance: DIVALPROEX SODIUM
     Route: 048
  2. ONDANSETRON [Suspect]
     Active Substance: ONDANSETRON
  3. OLANZAPINE. [Concomitant]
     Active Substance: OLANZAPINE
  4. RISPERIDONE. [Concomitant]
     Active Substance: RISPERIDONE
  5. CLONAZEPAM. [Concomitant]
     Active Substance: CLONAZEPAM
  6. LITHIUM. [Suspect]
     Active Substance: LITHIUM

REACTIONS (1)
  - Serotonin syndrome [Recovered/Resolved]
